FAERS Safety Report 4464027-6 (Version None)
Quarter: 2004Q4

REPORT INFORMATION
  Report Type: 
  Country: None (occurrence: None)
  Receive Date: 20041001
  Receipt Date: 20040924
  Transmission Date: 20050328
  Serious: Yes (Hospitalization)
  Sender: FDA-Public Use
  Company Number: FR-ABBOTT-04P-056-0274756-00

PATIENT
  Sex: Male
  Weight: 73 kg

DRUGS (4)
  1. HUMIRA [Suspect]
     Indication: RHEUMATOID ARTHRITIS
     Dosage: 40 MG
     Route: 058
     Dates: start: 20040414, end: 20040831
  2. CELECOXIB [Concomitant]
     Indication: RHEUMATOID ARTHRITIS
     Dates: end: 20040903
  3. LEFLUNOMIDE [Concomitant]
     Indication: RHEUMATOID ARTHRITIS
  4. MODUCREN [Concomitant]
     Indication: HYPERTENSION

REACTIONS (3)
  - DYSPNOEA [None]
  - OEDEMA PERIPHERAL [None]
  - PULMONARY EMBOLISM [None]
